FAERS Safety Report 6869506-X (Version None)
Quarter: 2010Q3

REPORT INFORMATION
  Report Type: 
  Country: None (occurrence: None)
  Receive Date: 20100721
  Receipt Date: 20100721
  Transmission Date: 20110219
  Serious: Yes (Other)
  Sender: FDA-Public Use
  Company Number: None

PATIENT
  Age: 18 Year
  Sex: Female
  Weight: 68.0396 kg

DRUGS (1)
  1. PROPRANOLOL [Suspect]
     Indication: MIGRAINE PROPHYLAXIS
     Dosage: 10 MG ONCE A DAY PO
     Route: 048
     Dates: start: 20080505, end: 20080514

REACTIONS (7)
  - CONCUSSION [None]
  - CONVULSION [None]
  - ECONOMIC PROBLEM [None]
  - EYE DISORDER [None]
  - FALL [None]
  - LOSS OF CONSCIOUSNESS [None]
  - VISION BLURRED [None]
